FAERS Safety Report 25024504 (Version 1)
Quarter: 2025Q1

REPORT INFORMATION
  Report Type: Spontaneous
  Country: US (occurrence: US)
  Receive Date: 20250228
  Receipt Date: 20250228
  Transmission Date: 20250409
  Serious: Yes (Other)
  Sender: PFIZER
  Company Number: US-PFIZER INC-PV202400022184

PATIENT
  Age: 78 Year
  Sex: Female

DRUGS (4)
  1. BRAFTOVI [Suspect]
     Active Substance: ENCORAFENIB
     Indication: Malignant melanoma
     Dosage: TAKE 300 MG DAILY/75 MG CAPSULE TAKE 4 DAILY/4 CAPSULES ONCE DAILY, MAY TAKE WITH OR WITHOUT FOOD
     Route: 048
  2. BRAFTOVI [Suspect]
     Active Substance: ENCORAFENIB
     Indication: Metastases to central nervous system
  3. MEKTOVI [Suspect]
     Active Substance: BINIMETINIB
     Indication: Malignant melanoma
     Dosage: TAKE 30MG EVERY 12 HOURS/30MG 2 TIMES DAILY/2 TABLETS (30MG) TWICE DAILY MAY TAKE WITH/WITHOUT FOOD
     Route: 048
  4. MEKTOVI [Suspect]
     Active Substance: BINIMETINIB
     Indication: Metastases to central nervous system

REACTIONS (1)
  - Fall [Not Recovered/Not Resolved]
